FAERS Safety Report 15633460 (Version 1)
Quarter: 2018Q4

REPORT INFORMATION
  Report Type: Spontaneous
  Country: US (occurrence: US)
  Receive Date: 20181119
  Receipt Date: 20181119
  Transmission Date: 20190205
  Serious: Yes (Other)
  Sender: FDA-Public Use
  Company Number: US-SA-2018SA066904

PATIENT
  Age: 62 Year
  Sex: Female

DRUGS (8)
  1. PARAPLATIN [Concomitant]
     Active Substance: CARBOPLATIN
  2. TAXOTERE [Suspect]
     Active Substance: DOCETAXEL
     Indication: BREAST CANCER FEMALE
     Dosage: UNK UNK,Q3W
     Route: 042
     Dates: start: 20130514, end: 20130514
  3. TAXOTERE [Suspect]
     Active Substance: DOCETAXEL
     Dosage: UNK UNK,Q3W
     Route: 042
     Dates: start: 20131009, end: 20131009
  4. LEVOTHYROXINE. [Concomitant]
     Active Substance: LEVOTHYROXINE
  5. HERCEPTIN [Concomitant]
     Active Substance: TRASTUZUMAB
  6. AMLODIPINE [Concomitant]
     Active Substance: AMLODIPINE BESYLATE
  7. OMEPRAZOLE. [Concomitant]
     Active Substance: OMEPRAZOLE
  8. ANASTROZOLE. [Concomitant]
     Active Substance: ANASTROZOLE

REACTIONS (6)
  - Alopecia [Recovering/Resolving]
  - Anxiety [Unknown]
  - Psychological trauma [Unknown]
  - Pain [Unknown]
  - Impaired quality of life [Unknown]
  - Emotional distress [Unknown]

NARRATIVE: CASE EVENT DATE: 20130901
